FAERS Safety Report 15237788 (Version 7)
Quarter: 2019Q2

REPORT INFORMATION
  Report Type: Spontaneous
  Country: US (occurrence: US)
  Receive Date: 20180803
  Receipt Date: 20190411
  Transmission Date: 20190711
  Serious: No
  Sender: FDA-Public Use
  Company Number: US-PFIZER INC-2018018008

PATIENT
  Age: 64 Year
  Sex: Male
  Weight: 107.9 kg

DRUGS (9)
  1. SOMAVERT [Suspect]
     Active Substance: PEGVISOMANT
     Dosage: 50 MG, DAILY (TAKES TWO INJECTIONS A DAY, ONE 20MG INJECTION AND ONE 30MG INJECTION)
     Dates: start: 201801
  2. SOMAVERT [Suspect]
     Active Substance: PEGVISOMANT
     Dosage: 120 MG, DAILY (TWO INJECTIONS EVERY MORNING)
  3. SOMAVERT [Suspect]
     Active Substance: PEGVISOMANT
     Dosage: 60 MG, DAILY
     Route: 058
     Dates: start: 201812
  4. BENICAR [Concomitant]
     Active Substance: OLMESARTAN MEDOXOMIL
     Indication: BLOOD PRESSURE ABNORMAL
     Dosage: UNK, 1X/DAY (IT IS A TWO PART PILL IT^S 40 MG AND 25 MG)
     Route: 048
  5. SOMAVERT [Suspect]
     Active Substance: PEGVISOMANT
     Indication: ACROMEGALY
     Dosage: 50 MG, DAILY (TAKES TWO INJECTIONS A DAY, ONE 20MG INJECTION AND ONE 30MG INJECTION)
     Dates: start: 201801
  6. ELIQUIS [Concomitant]
     Active Substance: APIXABAN
     Indication: ATRIAL FIBRILLATION
     Dosage: 5 MG, 2X/DAY
     Route: 048
     Dates: start: 201804
  7. SOMAVERT [Suspect]
     Active Substance: PEGVISOMANT
     Indication: PITUITARY TUMOUR
     Dosage: 40 MG, 1X/DAY
     Dates: end: 201712
  8. SOMAVERT [Suspect]
     Active Substance: PEGVISOMANT
     Dosage: 60 MG, DAILY
     Route: 058
     Dates: start: 2010
  9. METOPROLOL. [Concomitant]
     Active Substance: METOPROLOL
     Indication: HYPERTENSION
     Dosage: 50 MG, 1X/DAY
     Route: 048

REACTIONS (4)
  - Insulin-like growth factor increased [Not Recovered/Not Resolved]
  - Product use issue [Unknown]
  - Nuclear magnetic resonance imaging abnormal [Unknown]
  - Product dose omission [Unknown]
